FAERS Safety Report 17736486 (Version 1)
Quarter: 2020Q2

REPORT INFORMATION
  Report Type: Spontaneous
  Country: US (occurrence: US)
  Receive Date: 20200501
  Receipt Date: 20200501
  Transmission Date: 20200714
  Serious: No
  Sender: FDA-Public Use
  Company Number: US-ANIPHARMA-2019-US-014288

PATIENT
  Age: 71 Year
  Sex: Female
  Weight: 99.79 kg

DRUGS (26)
  1. PREDNISONE. [Concomitant]
     Active Substance: PREDNISONE
     Dosage: 10MG DAILY (7.5MG AM, 1.25MG NOON, AND 1.25MG 6PM)
     Route: 065
     Dates: start: 2011
  2. GINGKO BILOBA 60MG [Concomitant]
     Dosage: TWICE DAILY
  3. XILDRA EYE DROPS [Concomitant]
     Dosage: TWICE DAILY
     Dates: start: 20171215
  4. CLEOCIN T PLEDGET 1% TOPICAL [Concomitant]
     Dosage: TWICE DAILY AS NEEDED
  5. INDERAL LA [Suspect]
     Active Substance: PROPRANOLOL HYDROCHLORIDE
     Indication: SUPRAVENTRICULAR TACHYCARDIA
     Dosage: 80MG ONCE A DAY IN THE EVENING
     Route: 048
     Dates: start: 20190702, end: 20190731
  6. GENTAMICIN SULFATE OINTMENT [Concomitant]
     Dosage: AS NEEDED
  7. PREMARIN [Concomitant]
     Active Substance: ESTROGENS, CONJUGATED
     Dosage: 0.625MG DAILY AM
  8. ESTRATEST HS 0.625 [Concomitant]
     Dosage: 1.25 DAILY PM
  9. B12 TAB 1000MCG [Concomitant]
  10. D 3 400MG [Concomitant]
  11. VITAMIN K2 COMPLEX 1200MCG [Concomitant]
  12. BENADRYL [Concomitant]
     Active Substance: DIPHENHYDRAMINE HYDROCHLORIDE
     Dosage: 25MG EVERY 4 HOURS AS NEEDED
  13. C 500MG TABS [Concomitant]
  14. RED WINE EXTRACT 200MG [Concomitant]
     Dosage: THREE TIMES DAILY
  15. SYNTHROID [Concomitant]
     Active Substance: LEVOTHYROXINE SODIUM
     Dosage: 25MCG DAILY AM
  16. BIOTIN 1000MG [Concomitant]
  17. VITAMIN E 4000MC [Concomitant]
  18. SAMBUCAI (ELDERBERRY) [Concomitant]
     Dosage: AS NEEDED
  19. FOLIC ACID. [Concomitant]
     Active Substance: FOLIC ACID
     Dosage: 1MG DAILY AM
  20. DIFLUCAN [Concomitant]
     Active Substance: FLUCONAZOLE
     Dosage: AS NEEDED FOR FLAIR UPS-  2-3 PER WEEK
  21. NYSTATIN CREAM [Concomitant]
     Active Substance: NYSTATIN
     Dosage: AS NEEDED
  22. B6 100MG [Concomitant]
  23. FISH OIL 1200MG [Concomitant]
     Dosage: THREE TIMES DAILY
  24. MULTIVITAMIN- GERITOL [Concomitant]
  25. LASIX [Concomitant]
     Active Substance: FUROSEMIDE
     Dosage: 1/2 NOON AND 1/2 6PM
  26. ASPIRIN 325MG [Concomitant]
     Active Substance: ASPIRIN
     Dosage: THREE TIMES DAILY

REACTIONS (7)
  - Presyncope [Recovered/Resolved]
  - Heart rate decreased [Recovered/Resolved]
  - Condition aggravated [Recovered/Resolved]
  - Therapeutic product effect decreased [Recovered/Resolved]
  - Dizziness [Recovered/Resolved]
  - Blood pressure increased [Recovered/Resolved]
  - Supraventricular tachycardia [Recovered/Resolved]

NARRATIVE: CASE EVENT DATE: 201907
